FAERS Safety Report 11685410 (Version 1)
Quarter: 2015Q4

REPORT INFORMATION
  Report Type: Spontaneous
  Country: US (occurrence: None)
  Receive Date: 20151029
  Receipt Date: 20151029
  Transmission Date: 20160304
  Serious: Yes (Disabling)
  Sender: FDA-Public Use
  Company Number: None

PATIENT
  Age: 9 Year
  Sex: Male
  Weight: 31.75 kg

DRUGS (2)
  1. QVAR [Suspect]
     Active Substance: BECLOMETHASONE DIPROPIONATE
     Indication: ASTHMA
     Dosage: 2 PUFFS TWICE DAILY TAKEN BY MOUTH
     Route: 048
     Dates: start: 20151025, end: 20151027
  2. PROAIR INHALER [Concomitant]

REACTIONS (2)
  - Head titubation [None]
  - Tic [None]

NARRATIVE: CASE EVENT DATE: 20151027
